FAERS Safety Report 5924903-1 (Version None)
Quarter: 2008Q4

REPORT INFORMATION
  Report Type: 
  Country: None (occurrence: None)
  Receive Date: 20081017
  Receipt Date: 20081017
  Transmission Date: 20090506
  Serious: Yes (Other)
  Sender: FDA-Public Use
  Company Number: None

PATIENT
  Age: 87 Year
  Sex: Male
  Weight: 100.6985 kg

DRUGS (1)
  1. ALENDRONATE SODIUM [Suspect]
     Indication: BONE SCAN
     Dates: start: 20080529, end: 20080707

REACTIONS (2)
  - ASTHENIA [None]
  - PAIN [None]
